FAERS Safety Report 18289642 (Version 1)
Quarter: 2020Q3

REPORT INFORMATION
  Report Type: Spontaneous
  Country: US (occurrence: US)
  Receive Date: 20200921
  Receipt Date: 20200921
  Transmission Date: 20201103
  Serious: No
  Sender: FDA-Public Use
  Company Number: US-BRAINTREE LABORATORIES-190499

PATIENT
  Age: 50 Year
  Sex: Female
  Weight: 90.72 kg

DRUGS (1)
  1. SUPREP BOWEL PREP [Suspect]
     Active Substance: MAGNESIUM SULFATE\POTASSIUM SULFATE\SODIUM SULFATE
     Indication: COLONOSCOPY
     Dosage: 1 X 6 OZ. BOTTLE
     Route: 048
     Dates: start: 20190905, end: 20190905

REACTIONS (8)
  - Feeling jittery [None]
  - Asthenia [None]
  - Feeling cold [None]
  - Myalgia [None]
  - Nausea [None]
  - Muscular weakness [None]
  - Headache [None]
  - Tremor [None]

NARRATIVE: CASE EVENT DATE: 20190905
